FAERS Safety Report 21412934 (Version 1)
Quarter: 2022Q4

REPORT INFORMATION
  Report Type: Spontaneous
  Country: DE (occurrence: DE)
  Receive Date: 20221005
  Receipt Date: 20221005
  Transmission Date: 20230112
  Serious: Yes (Death, Hospitalization, Other)
  Sender: FDA-Public Use
  Company Number: DE-ALLERGAN-2232620US

PATIENT
  Sex: Male
  Weight: 77 kg

DRUGS (6)
  1. SILODOSIN [Suspect]
     Active Substance: SILODOSIN
     Indication: Product used for unknown indication
     Dosage: 4 MG, QPM
  2. CARBIDOPA\ENTACAPONE\LEVODOPA [Concomitant]
     Active Substance: CARBIDOPA\ENTACAPONE\LEVODOPA
     Dosage: UNK
  3. BENSERAZIDE HYDROCHLORIDE\LEVODOPA [Concomitant]
     Active Substance: BENSERAZIDE HYDROCHLORIDE\LEVODOPA
     Dosage: 1 DF, QAM
  4. QUETIAPINE [Concomitant]
     Active Substance: QUETIAPINE
     Dosage: 50 MG, QHS
  5. RIVASTIGMINE [Concomitant]
     Active Substance: RIVASTIGMINE
     Dosage: 4.6 MG, QAM
  6. LEVODOPA [Concomitant]
     Active Substance: LEVODOPA
     Dosage: UNK, QHS

REACTIONS (11)
  - Death [Fatal]
  - Systemic infection [Unknown]
  - Anaemia [Unknown]
  - General physical health deterioration [Unknown]
  - Pyrexia [Unknown]
  - Depressed level of consciousness [Unknown]
  - Sensation of foreign body [Unknown]
  - Lip swelling [Unknown]
  - Periorbital oedema [Unknown]
  - Condition aggravated [Unknown]
  - Swollen tongue [Unknown]

NARRATIVE: CASE EVENT DATE: 20210830
